FAERS Safety Report 8937576 (Version 1)
Quarter: 2012Q4

REPORT INFORMATION
  Report Type: Spontaneous
  Country: US (occurrence: None)
  Receive Date: 20121128
  Receipt Date: 20121128
  Transmission Date: 20130627
  Serious: Yes (Other)
  Sender: FDA-Public Use
  Company Number: None

PATIENT
  Age: 73 Year
  Sex: Female
  Weight: 54.5 kg

DRUGS (1)
  1. MINOCYCLINE [Suspect]
     Indication: POSTOPERATIVE INFECTION
     Dosage: 1 capsule  Twice Daily  By mouth
     Route: 048
     Dates: start: 20121012

REACTIONS (16)
  - Feeling abnormal [None]
  - Nervousness [None]
  - Paraesthesia [None]
  - Feeling cold [None]
  - Peripheral coldness [None]
  - Chills [None]
  - Tremor [None]
  - Dysstasia [None]
  - Asthenia [None]
  - Convulsion [None]
  - Pain [None]
  - Myalgia [None]
  - Nervousness [None]
  - Headache [None]
  - Fatigue [None]
  - Somnolence [None]
